FAERS Safety Report 8234150-9 (Version None)
Quarter: 2012Q1

REPORT INFORMATION
  Report Type: 
  Country: None (occurrence: None)
  Receive Date: 20120326
  Receipt Date: 20120314
  Transmission Date: 20120608
  Serious: Yes (Other)
  Sender: FDA-Public Use
  Company Number: US-SANOFI-AVENTIS-2012SA018184

PATIENT
  Age: 63 Year
  Sex: Male

DRUGS (6)
  1. UROLOGICALS [Concomitant]
     Indication: BENIGN PROSTATIC HYPERPLASIA
  2. AVODART [Concomitant]
     Indication: BENIGN PROSTATIC HYPERPLASIA
  3. CALCIUM CARBONATE [Concomitant]
  4. MULTAQ [Suspect]
     Route: 048
     Dates: start: 20110311, end: 20120313
  5. FISH OIL [Concomitant]
  6. MULTI-VITAMINS [Concomitant]

REACTIONS (4)
  - BLOOD BILIRUBIN INCREASED [None]
  - CHOLELITHIASIS [None]
  - HEPATOCELLULAR INJURY [None]
  - ABDOMINAL PAIN [None]
